FAERS Safety Report 16944376 (Version 1)
Quarter: 2019Q4

REPORT INFORMATION
  Report Type: Spontaneous
  Country: SA (occurrence: SA)
  Receive Date: 20191022
  Receipt Date: 20191022
  Transmission Date: 20200122
  Serious: Yes (Other)
  Sender: FDA-Public Use
  Company Number: SA-GLAXOSMITHKLINE-SA2019EME189489

PATIENT

DRUGS (1)
  1. FLIXONASE [Suspect]
     Active Substance: FLUTICASONE PROPIONATE
     Indication: RHINITIS ALLERGIC
     Dosage: 200 ?G, QD
     Dates: start: 20191001, end: 20191015

REACTIONS (2)
  - Oropharyngeal pain [Unknown]
  - Pharyngotonsillitis [Unknown]

NARRATIVE: CASE EVENT DATE: 20191015
